FAERS Safety Report 5830052-3 (Version None)
Quarter: 2008Q3

REPORT INFORMATION
  Report Type: 
  Country: None (occurrence: None)
  Receive Date: 20080801
  Receipt Date: 20080722
  Transmission Date: 20090109
  Serious: Yes (Hospitalization)
  Sender: FDA-Public Use
  Company Number: FR-AVENTIS-200612222FR

PATIENT
  Age: 33 Year
  Sex: Female

DRUGS (2)
  1. CORTANCYL [Suspect]
     Route: 048
     Dates: start: 19990115
  2. ARAVA [Suspect]
     Route: 048
     Dates: start: 20040815, end: 20051015

REACTIONS (2)
  - ECHINOCOCCIASIS [None]
  - RESPIRATORY DISORDER [None]
